FAERS Safety Report 4982726-4 (Version None)
Quarter: 2006Q2

REPORT INFORMATION
  Report Type: 
  Country: None (occurrence: None)
  Receive Date: 20060425
  Receipt Date: 20050207
  Transmission Date: 20061013
  Serious: Yes (Death)
  Sender: FDA-Public Use
  Company Number: US-MERCK-0502USA00924

PATIENT
  Age: 44 Year
  Sex: Male
  Weight: 141 kg

DRUGS (8)
  1. VIOXX [Suspect]
     Indication: SHOULDER PAIN
     Route: 048
     Dates: start: 20000101, end: 20020118
  2. VIOXX [Suspect]
     Indication: ARTHRITIS
     Route: 048
     Dates: start: 20000101, end: 20020118
  3. PAMIDRONATE DISODIUM [Concomitant]
     Route: 065
  4. HEPARIN [Concomitant]
     Route: 065
  5. ALLOPURINOL [Concomitant]
     Route: 065
  6. PERCOCET [Concomitant]
     Route: 065
  7. HYDROCHLOROTHIAZIDE [Concomitant]
     Route: 065
  8. [THERAPY UNSPECIFIED] [Concomitant]
     Route: 065

REACTIONS (7)
  - ARRHYTHMIA [None]
  - HYPERTENSION [None]
  - OEDEMA PERIPHERAL [None]
  - OVERDOSE [None]
  - PULMONARY EMBOLISM [None]
  - VENTRICULAR FIBRILLATION [None]
  - VENTRICULAR TACHYCARDIA [None]
